FAERS Safety Report 5156067-9 (Version None)
Quarter: 2006Q4

REPORT INFORMATION
  Report Type: 
  Country: None (occurrence: None)
  Receive Date: 20061122
  Receipt Date: 20061009
  Transmission Date: 20070319
  Serious: Yes (Other)
  Sender: FDA-Public Use
  Company Number: PHNU2006DE03388

PATIENT
  Age: 4 Year
  Sex: Male
  Weight: 18 kg

DRUGS (1)
  1. TRILEPTAL [Suspect]
     Indication: EPILEPSY
     Dosage: UNK, UNK
     Dates: start: 20031101

REACTIONS (7)
  - AMBLYOPIA [None]
  - ANAL SPHINCTER ATONY [None]
  - DIARRHOEA [None]
  - DIZZINESS [None]
  - FATIGUE [None]
  - MENTAL RETARDATION SEVERITY UNSPECIFIED [None]
  - MUSCLE SPASMS [None]
